FAERS Safety Report 8315614-6 (Version None)
Quarter: 2012Q2

REPORT INFORMATION
  Report Type: 
  Country: None (occurrence: None)
  Receive Date: 20120426
  Receipt Date: 20120416
  Transmission Date: 20120825
  Serious: Yes (Other)
  Sender: FDA-Public Use
  Company Number: US-BAXTER-2012BAX003207

PATIENT

DRUGS (2)
  1. FEIBA [Suspect]
     Route: 065
  2. NOVOSEVEN [Suspect]
     Route: 065

REACTIONS (1)
  - POST PROCEDURAL HAEMORRHAGE [None]
